FAERS Safety Report 20290322 (Version 3)
Quarter: 2022Q2

REPORT INFORMATION
  Report Type: Spontaneous
  Country: NL (occurrence: NL)
  Receive Date: 20220104
  Receipt Date: 20220403
  Transmission Date: 20220721
  Serious: Yes (Death)
  Sender: FDA-Public Use
  Company Number: NL-TEVA-493773ISR

PATIENT
  Age: 70 Year
  Sex: Female

DRUGS (5)
  1. VENLAFAXINE [Interacting]
     Active Substance: VENLAFAXINE HYDROCHLORIDE
     Indication: Affective disorder
     Route: 065
  2. METHYLENE BLUE [Interacting]
     Active Substance: METHYLENE BLUE
     Indication: Parathyroid gland operation
     Dosage: 1 GRAM OF METHYLENE BLUE (9 MG/KG)
     Route: 042
  3. PROPOFOL [Concomitant]
     Active Substance: PROPOFOL
     Indication: Induction and maintenance of anaesthesia
     Dosage: ANAESTHESIA WAS PERFORMED WITH PROPOFOL INDUCTION
  4. SEVOFLURANE [Concomitant]
     Active Substance: SEVOFLURANE
     Indication: Induction and maintenance of anaesthesia
     Dosage: SEVOFLURANE MAINTENANCE
  5. ATRACURIUM [Concomitant]
     Active Substance: ATRACURIUM
     Indication: Muscle relaxant therapy

REACTIONS (2)
  - Serotonin syndrome [Fatal]
  - Drug interaction [Fatal]
